FAERS Safety Report 15490941 (Version 1)
Quarter: 2018Q4

REPORT INFORMATION
  Report Type: Spontaneous
  Country: DE (occurrence: DE)
  Receive Date: 20181012
  Receipt Date: 20181012
  Transmission Date: 20190205
  Serious: Yes (Hospitalization, Other)
  Sender: FDA-Public Use
  Company Number: DE-TEVA-2018-DE-963366

PATIENT
  Sex: Female

DRUGS (3)
  1. LUMINAL 100MG [Interacting]
     Active Substance: PHENOBARBITAL
     Dosage: 150 MILLIGRAM DAILY; 1/2 TABLET IN THE MORNING, 1 TABLET IN THE EVENING
     Route: 065
  2. LAMOTRIGINE. [Suspect]
     Active Substance: LAMOTRIGINE
     Route: 065
  3. OSPOLOT 50MG [Interacting]
     Active Substance: SULTHIAME

REACTIONS (8)
  - Petit mal epilepsy [Not Recovered/Not Resolved]
  - Drug interaction [Unknown]
  - Insomnia [Unknown]
  - Intestinal dilatation [Not Recovered/Not Resolved]
  - Urosepsis [Recovered/Resolved]
  - Decreased appetite [Unknown]
  - Urinary tract infection [Not Recovered/Not Resolved]
  - Neurogenic bladder [Unknown]
